FAERS Safety Report 9935058 (Version 1)
Quarter: 2014Q1

REPORT INFORMATION
  Report Type: Spontaneous
  Country: US (occurrence: US)
  Receive Date: 20140228
  Receipt Date: 20140228
  Transmission Date: 20141002
  Serious: Yes (Hospitalization)
  Sender: FDA-Public Use
  Company Number: US-PFIZER INC-2014058227

PATIENT
  Age: 25 Year
  Sex: Male
  Weight: 72.6 kg

DRUGS (1)
  1. FLECTOR [Suspect]
     Indication: MUSCLE RUPTURE
     Dosage: UNK
     Dates: start: 2010, end: 2010

REACTIONS (3)
  - Vascular rupture [Recovering/Resolving]
  - Gastrointestinal haemorrhage [Recovering/Resolving]
  - Gastrointestinal necrosis [Recovering/Resolving]
